FAERS Safety Report 7100239-0 (Version None)
Quarter: 2010Q4

REPORT INFORMATION
  Report Type: 
  Country: None (occurrence: None)
  Receive Date: 20101112
  Receipt Date: 20101109
  Transmission Date: 20110411
  Serious: Yes (Hospitalization)
  Sender: FDA-Public Use
  Company Number: FI-PFIZER INC-2010143388

PATIENT
  Age: 68 Year
  Sex: Female

DRUGS (8)
  1. ENBREL [Suspect]
     Indication: RHEUMATOID ARTHRITIS
     Dosage: 50 MG ONCE A WEEK
     Route: 058
     Dates: start: 20070101, end: 20100101
  2. ZYVOX [Suspect]
     Dosage: UNK
     Dates: start: 20100101
  3. ARAVA [Concomitant]
     Indication: RHEUMATOID ARTHRITIS
     Dosage: 20MG THREE TIMES PER WEEK
     Route: 048
     Dates: end: 20100101
  4. PREDNISOLONE [Concomitant]
     Indication: RHEUMATOID ARTHRITIS
     Dosage: 2.5 MG, 1X/DAY
     Route: 048
     Dates: end: 20100101
  5. IDEOS [Concomitant]
     Dosage: 500 MG, 2X/DAY
  6. SOMAC [Concomitant]
     Dosage: 20 MG, 1X/DAY
  7. AMITRID [Concomitant]
     Dosage: 1 TABLET (2,84 MG/25 MG) ONCE DAILY
  8. SIMVASTATIN [Concomitant]
     Dosage: 20MG COUPLE TIMES PER WEEK

REACTIONS (3)
  - ANAEMIA [None]
  - DEVICE RELATED INFECTION [None]
  - STAPHYLOCOCCAL INFECTION [None]
